FAERS Safety Report 7764749-5 (Version None)
Quarter: 2011Q3

REPORT INFORMATION
  Report Type: 
  Country: None (occurrence: None)
  Receive Date: 20110921
  Receipt Date: 20110921
  Transmission Date: 20111222
  Serious: Yes (Other)
  Sender: FDA-Public Use
  Company Number: None

PATIENT
  Sex: Male
  Weight: 113.39 kg

DRUGS (1)
  1. SIMVASTATIN [Suspect]
     Indication: CARDIAC FAILURE CONGESTIVE
     Dosage: 40 MG
     Route: 048
     Dates: start: 20090404, end: 20110730

REACTIONS (4)
  - MUSCULAR WEAKNESS [None]
  - FATIGUE [None]
  - MYALGIA [None]
  - RESPIRATORY DISORDER [None]
